FAERS Safety Report 10186177 (Version 1)
Quarter: 2014Q2

REPORT INFORMATION
  Report Type: Spontaneous
  Country: US (occurrence: US)
  Receive Date: 20140521
  Receipt Date: 20140521
  Transmission Date: 20141212
  Serious: Yes (Hospitalization)
  Sender: FDA-Public Use
  Company Number: US-GLAXOSMITHKLINE-A1073322A

PATIENT
  Age: 55 Year
  Sex: Female

DRUGS (6)
  1. ADVAIR [Suspect]
     Indication: CHRONIC OBSTRUCTIVE PULMONARY DISEASE
     Dosage: 1PUFF PER DAY
     Route: 055
  2. XANAX [Concomitant]
  3. LORTAB [Concomitant]
  4. FLEXERIL [Concomitant]
  5. NEXIUM [Concomitant]
  6. NORCO [Concomitant]

REACTIONS (5)
  - Hand fracture [Recovering/Resolving]
  - Fall [Recovering/Resolving]
  - Drug dose omission [Unknown]
  - Gastrointestinal disorder [Unknown]
  - Musculoskeletal stiffness [Not Recovered/Not Resolved]
